FAERS Safety Report 9376185 (Version 1)
Quarter: 2013Q2

REPORT INFORMATION
  Report Type: Spontaneous
  Country: US (occurrence: None)
  Receive Date: 20130628
  Receipt Date: 20130628
  Transmission Date: 20140414
  Serious: No
  Sender: FDA-Public Use
  Company Number: None

PATIENT
  Sex: Female
  Weight: 69.85 kg

DRUGS (1)
  1. LOTREL [Suspect]
     Route: 048
     Dates: start: 2009

REACTIONS (5)
  - Headache [None]
  - Dizziness [None]
  - Cough [None]
  - Abdominal discomfort [None]
  - Product substitution issue [None]
